FAERS Safety Report 25056413 (Version 2)
Quarter: 2025Q2

REPORT INFORMATION
  Report Type: Report from Study
  Country: US (occurrence: US)
  Receive Date: 20250310
  Receipt Date: 20250606
  Transmission Date: 20250717
  Serious: Yes (Hospitalization)
  Sender: JOHNSON AND JOHNSON
  Company Number: US-JNJFOC-20250302723

PATIENT
  Age: 60 Year

DRUGS (1)
  1. REMICADE [Suspect]
     Active Substance: INFLIXIMAB
     Indication: Crohn^s disease
     Route: 041
     Dates: start: 201509

REACTIONS (6)
  - Pneumonia [Unknown]
  - Asthma [Unknown]
  - Fall [Unknown]
  - Drug hypersensitivity [Unknown]
  - Wrist fracture [Unknown]
  - Contusion [Unknown]

NARRATIVE: CASE EVENT DATE: 20250201
